FAERS Safety Report 11372998 (Version 1)
Quarter: 2015Q3

REPORT INFORMATION
  Report Type: Spontaneous
  Country: US (occurrence: US)
  Receive Date: 20150811
  Receipt Date: 20150811
  Transmission Date: 20151125
  Serious: No
  Sender: FDA-Public Use
  Company Number: US-ELI_LILLY_AND_COMPANY-US201204002114

PATIENT
  Sex: Male
  Weight: 108.84 kg

DRUGS (3)
  1. OXYCODON [Concomitant]
     Active Substance: OXYCODONE
     Dosage: 30 MG, TID
  2. CIALIS [Suspect]
     Active Substance: TADALAFIL
  3. SYNTHROID [Concomitant]
     Active Substance: LEVOTHYROXINE SODIUM
     Dosage: 200 UG, QD

REACTIONS (4)
  - Erythema [Recovered/Resolved]
  - Blood potassium decreased [Unknown]
  - Vitamin D decreased [Unknown]
  - Libido decreased [Unknown]
